FAERS Safety Report 22260975 (Version 2)
Quarter: 2023Q2

REPORT INFORMATION
  Report Type: Spontaneous
  Country: US (occurrence: US)
  Receive Date: 20230427
  Receipt Date: 20230508
  Transmission Date: 20230722
  Serious: Yes (Other)
  Sender: FDA-Public Use
  Company Number: US-APIL-2312894US

PATIENT
  Sex: Female
  Weight: 84.368 kg

DRUGS (3)
  1. ARMOUR THYROID [Suspect]
     Active Substance: THYROID, PORCINE
     Indication: Hypothyroidism
     Dosage: 45 MILLIGRAM
     Route: 048
     Dates: start: 2021
  2. ARMOUR THYROID [Suspect]
     Active Substance: THYROID, PORCINE
     Dosage: 45 MILLIGRAM
     Route: 048
     Dates: start: 2015, end: 2021
  3. ARMOUR THYROID [Suspect]
     Active Substance: THYROID, PORCINE
     Indication: Hypothyroidism
     Dosage: 60 MG, QD
     Dates: start: 2021, end: 2021

REACTIONS (20)
  - Visual impairment [Recovered/Resolved]
  - Blood pressure increased [Recovered/Resolved]
  - Progesterone decreased [Recovered/Resolved]
  - Hypertension [Unknown]
  - Hyperthyroidism [Recovered/Resolved]
  - Hyperthyroidism [Recovered/Resolved]
  - Poisoning [Unknown]
  - Headache [Recovered/Resolved]
  - Vomiting [Recovered/Resolved]
  - Dizziness [Recovered/Resolved]
  - Nausea [Recovered/Resolved]
  - Dizziness [Recovered/Resolved]
  - Choking sensation [Recovered/Resolved]
  - Therapeutic product effect increased [Recovered/Resolved]
  - Hyperhidrosis [Recovered/Resolved]
  - Hyperhidrosis [Recovered/Resolved]
  - Autoimmune disorder [Unknown]
  - Cardiac disorder [Unknown]
  - Product dispensing error [Unknown]
  - Product taste abnormal [Unknown]

NARRATIVE: CASE EVENT DATE: 20210101
